FAERS Safety Report 25912637 (Version 2)
Quarter: 2025Q4

REPORT INFORMATION
  Report Type: Spontaneous
  Country: US (occurrence: US)
  Receive Date: 20251013
  Receipt Date: 20251024
  Transmission Date: 20260118
  Serious: No
  Sender: DR REDDYS
  Company Number: US-DRL-USA-USA/2025/08/012648

PATIENT
  Age: 75 Year
  Sex: Female
  Weight: 75.3 kg

DRUGS (1)
  1. CLONIDINE [Suspect]
     Active Substance: CLONIDINE
     Indication: Blood pressure abnormal
     Dosage: OUT IT ON ONCE A WEEK,
     Route: 065
     Dates: start: 20250724

REACTIONS (3)
  - Rash [Not Recovered/Not Resolved]
  - Product adhesion issue [Unknown]
  - Allergic reaction to excipient [Not Recovered/Not Resolved]
